FAERS Safety Report 20673018 (Version 14)
Quarter: 2022Q4

REPORT INFORMATION
  Report Type: Spontaneous
  Country: US (occurrence: US)
  Receive Date: 20220405
  Receipt Date: 20221219
  Transmission Date: 20230113
  Serious: Yes (Other)
  Sender: FDA-Public Use
  Company Number: US-GLAXOSMITHKLINE-US2022AMR059502

PATIENT

DRUGS (2)
  1. ZEJULA [Suspect]
     Active Substance: NIRAPARIB
     Indication: Ovarian cancer
     Dosage: 300 MG, QD
  2. ZEJULA [Suspect]
     Active Substance: NIRAPARIB
     Dosage: 200 MG, QD
     Dates: start: 202206

REACTIONS (18)
  - Neuropathy peripheral [Not Recovered/Not Resolved]
  - Constipation [Recovering/Resolving]
  - Palpitations [Unknown]
  - Heart rate increased [Unknown]
  - Condition aggravated [Unknown]
  - Dry mouth [Unknown]
  - Fatigue [Not Recovered/Not Resolved]
  - Decreased appetite [Unknown]
  - Full blood count abnormal [Unknown]
  - Tongue disorder [Recovered/Resolved]
  - Decreased activity [Unknown]
  - Motor dysfunction [Unknown]
  - Feeling abnormal [Recovered/Resolved]
  - Emotional disorder [Not Recovered/Not Resolved]
  - Crying [Recovered/Resolved]
  - Haemoglobin decreased [Unknown]
  - Tearfulness [Unknown]
  - Abdominal hernia [Unknown]
